FAERS Safety Report 18515421 (Version 9)
Quarter: 2022Q3

REPORT INFORMATION
  Report Type: Spontaneous
  Country: CZ (occurrence: CZ)
  Receive Date: 20201118
  Receipt Date: 20220927
  Transmission Date: 20221027
  Serious: Yes (Hospitalization, Disabling, Other)
  Sender: FDA-Public Use
  Company Number: None

PATIENT
  Age: 86 Year
  Sex: Female

DRUGS (49)
  1. DONEPEZIL HYDROCHLORIDE [Interacting]
     Active Substance: DONEPEZIL HYDROCHLORIDE
     Indication: Product used for unknown indication
     Route: 065
  2. METHOTREXATE [Interacting]
     Active Substance: METHOTREXATE
     Indication: Rheumatoid arthritis
     Dosage: 1-0-0 (SUNDAY), 10 MG, QW
     Route: 048
     Dates: start: 2010
  3. RAMIPRIL [Interacting]
     Active Substance: RAMIPRIL
     Indication: Product used for unknown indication
     Route: 065
  4. PANTOPRAZOLE [Interacting]
     Active Substance: PANTOPRAZOLE
     Indication: Product used for unknown indication
     Dosage: UNK
     Route: 065
  5. TRAZODONE HYDROCHLORIDE [Interacting]
     Active Substance: TRAZODONE HYDROCHLORIDE
     Indication: Product used for unknown indication
     Route: 065
  6. CALCIUM\CHOLECALCIFEROL [Interacting]
     Active Substance: CALCIUM\CHOLECALCIFEROL
     Indication: Calcium deficiency
     Dosage: DOSE: 0-0-1
     Route: 048
  7. CONTROLOC [Interacting]
     Active Substance: PANTOPRAZOLE SODIUM
     Indication: Nausea
     Dosage: DOSE: 1-0-0, 20 MG, QD
     Route: 048
  8. FENTANYL [Interacting]
     Active Substance: FENTANYL
     Indication: Post herpetic neuralgia
     Dosage: 25 MICROGRAM/H A 72 HOUR, 25 UG, Q72H
     Route: 062
     Dates: start: 2015
  9. MAGNESIUM ASPARTATE\POTASSIUM ASPARTATE [Interacting]
     Active Substance: MAGNESIUM ASPARTATE\POTASSIUM ASPARTATE
     Indication: Encephalopathy
     Dosage: DOSE: 0-1-0
     Route: 048
  10. SODIUM PICOSULFATE [Interacting]
     Active Substance: SODIUM PICOSULFATE
     Indication: Constipation
     Dosage: 10-20 GUTTES,IN THE EVENING
     Route: 048
  11. EUTHYROX [Interacting]
     Active Substance: LEVOTHYROXINE SODIUM
     Indication: Autoimmune thyroiditis
     Dosage: STRENGTH: 100 MICROGRAM/TABLET DOSE: 1-0-0, 100 UG, QD
     Route: 048
  12. METOPROLOL SUCCINATE [Interacting]
     Active Substance: METOPROLOL SUCCINATE
     Indication: Hypertension
     Dosage: STRENGTH: 25 MG DOSE: 1-0-0, 25 MG, QD
     Route: 048
  13. TELMISARTAN [Interacting]
     Active Substance: TELMISARTAN
     Indication: Hypertension
     Dosage: 80/12.5 MG,  DOSE: 1-0-0
     Route: 048
  14. METAMIZOLE [Interacting]
     Active Substance: METAMIZOLE
     Indication: Post herpetic neuralgia
     Dosage: 1-0-1
     Route: 048
     Dates: start: 2015
  15. PREDNISONE [Interacting]
     Active Substance: PREDNISONE
     Indication: Steroid therapy
     Dosage: STRENGTH: 5 MG DOSE: 1-0-0, UNK, QD
     Route: 048
  16. ELIQUIS [Interacting]
     Active Substance: APIXABAN
     Indication: Anticoagulant therapy
     Dosage: STRENGTH: 5 MG DOSE: 1-0-1
     Route: 048
  17. METAMIZOLE [Interacting]
     Active Substance: METAMIZOLE
     Indication: Hypertension
     Dosage: DOSE: 1-0-1, 500 MG, Q12H
  18. PANADOL [Interacting]
     Active Substance: ACETAMINOPHEN
     Indication: Pain
     Dosage: 1.5 DF (3-4 TIMES A DAY)
     Route: 048
     Dates: start: 2015
  19. MELOXICAM [Interacting]
     Active Substance: MELOXICAM
     Indication: Post herpetic neuralgia
     Dosage: 1 DF, QW
     Route: 048
     Dates: start: 2015
  20. AMLODIPINE BESYLATE [Interacting]
     Active Substance: AMLODIPINE BESYLATE
     Indication: Hypertension
     Dosage: STRENGTH: 5 MG DOSE: 1-0-0, 5 MG, QD
     Route: 048
  21. ROSUVASTATIN CALCIUM [Interacting]
     Active Substance: ROSUVASTATIN CALCIUM
     Indication: Product used for unknown indication
     Dosage: STRENGTH 20 MG, 20 MG, QD
     Route: 048
  22. CORDARONE [Interacting]
     Active Substance: AMIODARONE HYDROCHLORIDE
     Indication: Atrial fibrillation
     Dosage: STRENGTH: 200 MG DOSE: 1-0-0, 200 MG, QD
     Route: 048
  23. SODIUM CHONDROITIN SULFATE [Interacting]
     Active Substance: SODIUM CHONDROITIN SULFATE
     Indication: Rheumatoid arthritis
     Dosage: STRENGTH: 800 MG DOSE: 0-0-1, 800 MG, QD
     Route: 048
  24. FOLIC ACID [Interacting]
     Active Substance: FOLIC ACID
     Indication: Product used for unknown indication
     Dosage: 10 MG
     Route: 048
  25. ZOLPIDEM TARTRATE [Interacting]
     Active Substance: ZOLPIDEM TARTRATE
     Dosage: OVERUSED
  26. ZOLPIDEM TARTRATE [Interacting]
     Active Substance: ZOLPIDEM TARTRATE
     Dosage: OVERUSED
  27. TRAMADOL [Interacting]
     Active Substance: TRAMADOL
     Indication: Product used for unknown indication
     Dosage: OVERUSED
     Route: 048
  28. IBUPROFEN [Interacting]
     Active Substance: IBUPROFEN
     Indication: Pain
     Dosage: UNK
  29. OXAZEPAM [Interacting]
     Active Substance: OXAZEPAM
     Dosage: OVERUSED
     Route: 048
  30. POTASSIUM ASPARTATE [Interacting]
     Active Substance: POTASSIUM ASPARTATE
     Dosage: UNK
     Route: 065
  31. MAGNESIUM ASPARTATE\POTASSIUM ASPARTATE [Interacting]
     Active Substance: MAGNESIUM ASPARTATE\POTASSIUM ASPARTATE
     Indication: Product used for unknown indication
     Dosage: 0-1-0
     Route: 048
  32. TELMISARTAN [Interacting]
     Active Substance: TELMISARTAN
     Indication: Product used for unknown indication
     Dosage: 1-0-0: 12.5 MG/80 MG
     Route: 048
  33. ALPRAZOLAM [Interacting]
     Active Substance: ALPRAZOLAM
     Indication: Product used for unknown indication
     Route: 065
  34. GUAIFENESIN [Interacting]
     Active Substance: GUAIFENESIN
     Indication: Product used for unknown indication
     Route: 065
  35. OMEPRAZOLE [Interacting]
     Active Substance: OMEPRAZOLE
     Indication: Product used for unknown indication
     Route: 065
  36. CAPTOPRIL [Interacting]
     Active Substance: CAPTOPRIL
     Indication: Product used for unknown indication
     Route: 065
  37. MAGNESIUM [Interacting]
     Active Substance: MAGNESIUM
     Indication: Product used for unknown indication
  38. PREGABALIN [Concomitant]
     Active Substance: PREGABALIN
     Indication: Post herpetic neuralgia
  39. FENTANYL [Interacting]
     Active Substance: FENTANYL
     Indication: Pain
     Dates: start: 2015
  40. ZOLPIDEM TARTRATE [Interacting]
     Active Substance: ZOLPIDEM TARTRATE
     Dosage: UNK
     Route: 065
  41. SODIUM PICOSULFATE [Interacting]
     Active Substance: SODIUM PICOSULFATE
     Indication: Constipation
     Dosage: 1 DF
     Route: 065
  42. ZOLPIDEM TARTRATE [Interacting]
     Active Substance: ZOLPIDEM TARTRATE
     Dosage: UNK
     Route: 065
  43. SODIUM PICOSULFATE [Interacting]
     Active Substance: SODIUM PICOSULFATE
     Indication: Constipation
     Dosage: 1 DF
     Route: 065
  44. MELOXICAM [Interacting]
     Active Substance: MELOXICAM
     Indication: Pain
     Dosage: STRENGTH: 15 MG TAKEN APPROX. 3 TIMES PER WEEK
     Route: 048
     Dates: start: 2015
  45. METHOTREXATE [Interacting]
     Active Substance: METHOTREXATE
     Indication: Rheumatoid arthritis
     Dosage: 10 MILLIGRAM, QWK
     Route: 065
     Dates: start: 2010
  46. PANADOL [Interacting]
     Active Substance: ACETAMINOPHEN
     Indication: Pain
     Dosage: 1.5 TABLETS 3-4 TIMES A DAY
     Route: 048
     Dates: start: 2015
  47. MELOXICAM [Interacting]
     Active Substance: MELOXICAM
     Indication: Post herpetic neuralgia
     Dosage: 1 TBL IF PAIN, APP. 3 TIMES A WEEK
     Route: 048
     Dates: start: 2015
  48. PANADOL [Interacting]
     Active Substance: ACETAMINOPHEN
     Indication: Pain
     Dosage: 1.5 TABLETS 3-4 TIMES A DAY
     Route: 048
     Dates: start: 2015
  49. MELOXICAM [Interacting]
     Active Substance: MELOXICAM
     Indication: Post herpetic neuralgia
     Dosage: 1 TBL IF PAIN, APP. 3 TIMES A WEEK
     Route: 048
     Dates: start: 2015

REACTIONS (50)
  - Listless [Recovering/Resolving]
  - Cognitive disorder [Recovered/Resolved]
  - Head discomfort [Recovered/Resolved]
  - Hyponatraemia [Recovered/Resolved]
  - Nausea [Recovered/Resolved]
  - Liver function test increased [Recovered/Resolved]
  - Atrial fibrillation [Recovered/Resolved]
  - Apathy [Recovered/Resolved]
  - Confusional state [Recovering/Resolving]
  - Oxygen saturation decreased [Recovered/Resolved]
  - Medication error [Unknown]
  - Hypokalaemia [Recovered/Resolved]
  - Urinary retention [Recovered/Resolved]
  - Vertigo [Recovered/Resolved]
  - Drug interaction [Unknown]
  - Encephalopathy [Recovering/Resolving]
  - General physical health deterioration [Recovering/Resolving]
  - Restlessness [Recovered/Resolved]
  - Pelvic fracture [Recovered/Resolved]
  - Hypoacusis [Recovered/Resolved]
  - Drug abuse [Unknown]
  - Condition aggravated [Recovered/Resolved]
  - Dizziness [Recovered/Resolved]
  - Concomitant disease aggravated [Recovering/Resolving]
  - Prescription drug used without a prescription [Unknown]
  - Intentional product misuse [Unknown]
  - Foreign body [Recovered/Resolved]
  - Anxiety [Recovered/Resolved]
  - Contusion [Recovered/Resolved]
  - Fracture [Recovered/Resolved]
  - Hypertension [Recovering/Resolving]
  - Product use issue [Unknown]
  - Poor quality sleep [Recovered/Resolved]
  - Deafness [Recovered/Resolved]
  - Dehydration [Recovered/Resolved]
  - Bedridden [Recovered/Resolved]
  - Mobility decreased [Recovered/Resolved]
  - Loss of personal independence in daily activities [Recovered/Resolved]
  - Incorrect dose administered [Unknown]
  - Affect lability [Recovered/Resolved]
  - Reduced facial expression [Recovered/Resolved]
  - Immobile [Recovered/Resolved]
  - Delirium [Recovered/Resolved]
  - Discomfort [Recovered/Resolved]
  - Fall [Unknown]
  - Sleep disorder [Recovering/Resolving]
  - Overdose [Unknown]
  - Hypokalaemia [Recovered/Resolved]
  - Mood swings [Recovered/Resolved]
  - Liver function test abnormal [Recovered/Resolved]

NARRATIVE: CASE EVENT DATE: 20180101
